FAERS Safety Report 11598952 (Version 3)
Quarter: 2015Q4

REPORT INFORMATION
  Report Type: Report from Study
  Country: NL (occurrence: NL)
  Receive Date: 20151006
  Receipt Date: 20151111
  Transmission Date: 20160304
  Serious: Yes (Hospitalization, Other)
  Sender: FDA-Public Use
  Company Number: NL-AMGEN-NLDSL2015102437

PATIENT
  Age: 81 Year
  Sex: Male

DRUGS (2)
  1. DOCETAXEL. [Concomitant]
     Active Substance: DOCETAXEL
  2. XGEVA [Suspect]
     Active Substance: DENOSUMAB
     Indication: PROSTATE CANCER METASTATIC
     Dosage: UNK, Q4WK
     Route: 058
     Dates: start: 20130711

REACTIONS (3)
  - Paraesthesia [Unknown]
  - Incontinence [Unknown]
  - Metastases to spine [Unknown]

NARRATIVE: CASE EVENT DATE: 20150927
